FAERS Safety Report 9891475 (Version 7)
Quarter: 2014Q2

REPORT INFORMATION
  Report Type: Report from Study
  Country: BR (occurrence: BR)
  Receive Date: 20140212
  Receipt Date: 20140605
  Transmission Date: 20141212
  Serious: Yes (Hospitalization, Other)
  Sender: FDA-Public Use
  Company Number: PHHY2014BR011737

PATIENT
  Sex: Male
  Weight: 98 kg

DRUGS (11)
  1. ONBREZ [Suspect]
     Indication: EMPHYSEMA
     Dosage: 300 UG, QD IN THE MORNING
     Route: 055
     Dates: start: 201304
  2. ONBREZ [Suspect]
     Indication: OFF LABEL USE
     Dosage: 300 UG, QD IN THE NIGHT
     Route: 055
     Dates: end: 201402
  3. MIFLONIDE [Suspect]
     Indication: EMPHYSEMA
     Dosage: 400 UG (1 CAPSULE), Q12H
     Route: 055
     Dates: start: 201304
  4. MIFLONIDE [Suspect]
     Indication: OFF LABEL USE
     Dosage: 400 UG (1 CAPSULE), Q12H
     Route: 055
     Dates: end: 201402
  5. METFORMIN [Concomitant]
     Indication: DIABETES MELLITUS
     Dosage: 850 MG, UNK
     Dates: start: 2009
  6. GLIMEPIRIDE [Concomitant]
     Indication: DIABETES MELLITUS
     Dosage: 2 MG, UNK
     Dates: start: 201301
  7. LOSARTAN [Concomitant]
     Indication: CARDIAC DISORDER
     Dosage: 50 MG, UNK
     Dates: start: 201401
  8. AAS [Concomitant]
     Indication: COAGULOPATHY
     Dosage: UNK
     Dates: start: 2004
  9. ALDACTONE [Concomitant]
     Indication: CARDIAC DISORDER
     Dosage: 25 MG, UNK
     Dates: start: 20140111
  10. FUROSEMIDE [Concomitant]
     Indication: DYSURIA
     Dosage: 40 MG, UNK
     Dates: start: 2006
  11. TUBERCULOSIS VACCINES [Concomitant]
     Dosage: UNK UKN, UNK

REACTIONS (22)
  - Cardiomegaly [Not Recovered/Not Resolved]
  - Cardiac failure [Recovering/Resolving]
  - Peripheral swelling [Recovering/Resolving]
  - Swelling [Recovering/Resolving]
  - Dyspnoea [Recovering/Resolving]
  - Cardiac disorder [Recovering/Resolving]
  - Infarction [Recovering/Resolving]
  - Ischaemia [Recovering/Resolving]
  - Insomnia [Recovering/Resolving]
  - Renal vessel disorder [Recovering/Resolving]
  - Pulmonary vascular disorder [Recovering/Resolving]
  - Fatigue [Not Recovered/Not Resolved]
  - Arteriosclerosis coronary artery [Recovering/Resolving]
  - Anastomotic complication [Recovering/Resolving]
  - Emphysema [Unknown]
  - Syncope [Not Recovered/Not Resolved]
  - Cerebrovascular accident [Recovering/Resolving]
  - Thrombosis [Recovering/Resolving]
  - Hypertension [Recovering/Resolving]
  - Malaise [Unknown]
  - Dizziness [Not Recovered/Not Resolved]
  - Drug ineffective [Unknown]
